FAERS Safety Report 8163289-1 (Version None)
Quarter: 2012Q1

REPORT INFORMATION
  Report Type: 
  Country: None (occurrence: None)
  Receive Date: 20120224
  Receipt Date: 20110309
  Transmission Date: 20120608
  Serious: No
  Sender: FDA-Public Use
  Company Number: US-PFIZER INC-K201100254

PATIENT
  Sex: Female
  Weight: 63.492 kg

DRUGS (1)
  1. FLECTOR [Suspect]
     Indication: BACK PAIN
     Dosage: 1 PATCH, BID
     Route: 061
     Dates: start: 20101201, end: 20101201

REACTIONS (4)
  - ABDOMINAL PAIN [None]
  - WEIGHT DECREASED [None]
  - DIZZINESS [None]
  - NAUSEA [None]
